FAERS Safety Report 4315689-5 (Version None)
Quarter: 2004Q1

REPORT INFORMATION
  Report Type: 
  Country: None (occurrence: None)
  Receive Date: 20040310
  Receipt Date: 20040303
  Transmission Date: 20041129
  Serious: Yes (Disabling, Other)
  Sender: FDA-Public Use
  Company Number: 2004201867US

PATIENT

DRUGS (1)
  1. ZYVOX [Suspect]

REACTIONS (1)
  - OPTIC NEURITIS [None]
